FAERS Safety Report 15559763 (Version 1)
Quarter: 2018Q4

REPORT INFORMATION
  Report Type: Spontaneous
  Country: US (occurrence: US)
  Receive Date: 20181029
  Receipt Date: 20181029
  Transmission Date: 20190205
  Serious: No
  Sender: FDA-Public Use
  Company Number: US-LUPIN PHARMACEUTICALS INC.-2018-02926

PATIENT
  Age: 17 Year
  Sex: Male

DRUGS (3)
  1. AMLODIPINE [Concomitant]
     Active Substance: AMLODIPINE BESYLATE
     Indication: LEFT VENTRICULAR HYPERTROPHY
     Dosage: 10 MG, QD
     Route: 048
  2. ATENOLOL. [Concomitant]
     Active Substance: ATENOLOL
     Indication: LEFT VENTRICULAR HYPERTROPHY
     Dosage: 25 MG, BID
     Route: 048
  3. LISINOPRIL. [Suspect]
     Active Substance: LISINOPRIL
     Indication: LEFT VENTRICULAR HYPERTROPHY
     Dosage: UNK
     Route: 065

REACTIONS (1)
  - Urticaria [Unknown]
